FAERS Safety Report 9609889 (Version 2)
Quarter: 2013Q4

REPORT INFORMATION
  Report Type: Spontaneous
  Country: FR (occurrence: FR)
  Receive Date: 20131009
  Receipt Date: 20131226
  Transmission Date: 20140711
  Serious: Yes (Hospitalization)
  Sender: FDA-Public Use
  Company Number: PHHY2013FR112697

PATIENT
  Age: 85 Year
  Sex: Female
  Weight: 81.2 kg

DRUGS (5)
  1. NISISCO [Suspect]
     Indication: HYPERTENSION
     Dosage: 1 DF (80MG VALS/12.5MG HCT), DAILY
     Route: 048
     Dates: end: 20130725
  2. REMINYL [Concomitant]
     Indication: DEMENTIA ALZHEIMER^S TYPE
     Dosage: 1 DF, DAILY
     Route: 048
  3. DOLIPRANE [Concomitant]
     Indication: PAIN
     Dosage: 3 G, DAILY
     Route: 048
  4. MOVICOL [Concomitant]
     Indication: CONSTIPATION
     Dosage: 1 OR 2 DF DAILY
     Route: 048
  5. HYPERIUM [Concomitant]
     Indication: HYPERTENSION
     Dosage: 1 DF, DAILY
     Route: 048

REACTIONS (5)
  - Confusional state [Recovered/Resolved]
  - Disorientation [Unknown]
  - Agitation [Unknown]
  - Hyponatraemia [Recovered/Resolved]
  - Renal failure acute [Recovered/Resolved]
